FAERS Safety Report 13838800 (Version 2)
Quarter: 2017Q3

REPORT INFORMATION
  Report Type: Spontaneous
  Country: US (occurrence: US)
  Receive Date: 20170807
  Receipt Date: 20170914
  Transmission Date: 20171127
  Serious: No
  Sender: FDA-Public Use
  Company Number: US-PFIZER INC-2017337256

PATIENT
  Sex: Female

DRUGS (1)
  1. LYRICA [Suspect]
     Active Substance: PREGABALIN
     Indication: ENDOMETRIOSIS
     Dosage: 75 MG, 2X/DAY
     Dates: start: 20170717

REACTIONS (1)
  - Drug ineffective for unapproved indication [Unknown]
